FAERS Safety Report 11622885 (Version 1)
Quarter: 2015Q4

REPORT INFORMATION
  Report Type: Spontaneous
  Country: US (occurrence: US)
  Receive Date: 20151013
  Receipt Date: 20151013
  Transmission Date: 20160304
  Serious: No
  Sender: FDA-Public Use
  Company Number: US-JNJFOC-20150406899

PATIENT
  Age: 66 Year
  Sex: Female
  Weight: 79.38 kg

DRUGS (2)
  1. TYLENOL 8 HOUR CAPLET [Suspect]
     Active Substance: ACETAMINOPHEN
     Route: 048
  2. TYLENOL 8 HOUR CAPLET [Suspect]
     Active Substance: ACETAMINOPHEN
     Indication: ARTHRITIS
     Route: 048

REACTIONS (2)
  - Expired product administered [Unknown]
  - Product packaging issue [Unknown]
